FAERS Safety Report 25436521 (Version 1)
Quarter: 2025Q2

REPORT INFORMATION
  Report Type: Spontaneous
  Country: JP (occurrence: JP)
  Receive Date: 20250614
  Receipt Date: 20250614
  Transmission Date: 20250716
  Serious: Yes (Other)
  Sender: AMGEN
  Company Number: JP-AMGEN-JPNSP2025112145

PATIENT

DRUGS (4)
  1. PEGFILGRASTIM [Suspect]
     Active Substance: PEGFILGRASTIM
     Indication: Prophylaxis
     Dosage: 3.6 MILLIGRAM//BODY, Q2WK ON DAY 4 FOR A TOTAL OF SIX CYCLES
     Route: 065
  2. METHOTREXATE [Suspect]
     Active Substance: METHOTREXATE
     Indication: Transitional cell carcinoma
     Dosage: 30 MILLIGRAM/SQ. METER, Q2WK, ON DAY 1 FOR A TOTAL OF SIX CYCLES
     Route: 065
  3. VINBLASTINE [Suspect]
     Active Substance: VINBLASTINE
     Indication: Transitional cell carcinoma
     Dosage: 3 MILLIGRAM/SQ. METER, Q2WK, ON DAY 2 FOR A TOTAL OF SIX CYCLES
     Route: 065
  4. CISPLATIN [Suspect]
     Active Substance: CISPLATIN
     Indication: Transitional cell carcinoma
     Dosage: 70 MILLIGRAM/SQ. METER, Q2WK, ON DAY 2 FOR A TOTAL OF SIX CYCLES
     Route: 065

REACTIONS (19)
  - Lower gastrointestinal haemorrhage [Unknown]
  - Febrile neutropenia [Unknown]
  - Sepsis [Unknown]
  - Pneumonia [Unknown]
  - Embolism [Unknown]
  - Neutropenia [Unknown]
  - Leukopenia [Unknown]
  - Anaemia [Unknown]
  - Bronchitis [Unknown]
  - Peripheral sensory neuropathy [Unknown]
  - Decreased appetite [Unknown]
  - Fatigue [Unknown]
  - Constipation [Unknown]
  - Nausea [Unknown]
  - Vomiting [Unknown]
  - Pyrexia [Unknown]
  - Infusion site extravasation [Unknown]
  - Transitional cell carcinoma [Unknown]
  - Thrombocytopenia [Unknown]
